FAERS Safety Report 24158042 (Version 4)
Quarter: 2024Q3

REPORT INFORMATION
  Report Type: Spontaneous
  Country: US (occurrence: US)
  Receive Date: 20240731
  Receipt Date: 20240821
  Transmission Date: 20241016
  Serious: No
  Sender: ROCHE
  Company Number: US-ROCHE-10000038376

PATIENT
  Age: 37 Year
  Sex: Male
  Weight: 93.89 kg

DRUGS (4)
  1. ACTEMRA ACTPEN [Suspect]
     Active Substance: TOCILIZUMAB
     Indication: Rheumatoid arthritis
     Route: 058
     Dates: start: 202309
  2. METHOTREXATE [Concomitant]
     Active Substance: METHOTREXATE
  3. PLAQUENIL [Concomitant]
     Active Substance: HYDROXYCHLOROQUINE SULFATE
  4. FOLIC ACID [Concomitant]
     Active Substance: FOLIC ACID

REACTIONS (7)
  - Product complaint [Unknown]
  - Device issue [Unknown]
  - Product preparation error [Unknown]
  - Product dose omission issue [Unknown]
  - Blood creatinine increased [Unknown]
  - Pain [Unknown]
  - Drug delivery system malfunction [Unknown]

NARRATIVE: CASE EVENT DATE: 20240719
